FAERS Safety Report 6881319-1 (Version None)
Quarter: 2010Q3

REPORT INFORMATION
  Report Type: 
  Country: None (occurrence: None)
  Receive Date: 20100728
  Receipt Date: 20100719
  Transmission Date: 20110219
  Serious: Yes (Hospitalization)
  Sender: FDA-Public Use
  Company Number: DE-AMGEN-US331353

PATIENT
  Age: 79 Year
  Sex: Female

DRUGS (4)
  1. ENBREL [Suspect]
     Indication: RHEUMATOID ARTHRITIS
     Route: 058
     Dates: start: 20020201, end: 20020401
  2. ENBREL [Suspect]
     Route: 058
     Dates: start: 20040501, end: 20070309
  3. ENBREL [Suspect]
     Route: 058
     Dates: start: 20020701, end: 20040201
  4. METHOTREXATE [Suspect]
     Indication: RHEUMATOID ARTHRITIS
     Route: 065
     Dates: start: 19990901, end: 20020401

REACTIONS (1)
  - BREAST CANCER RECURRENT [None]
